FAERS Safety Report 8784687 (Version 1)
Quarter: 2012Q4

REPORT INFORMATION
  Report Type: Spontaneous
  Country: GR (occurrence: None)
  Receive Date: 20120831
  Receipt Date: 20120831
  Transmission Date: 20130627
  Serious: Yes (Disabling)
  Sender: FDA-Public Use
  Company Number: GR-INDICUS-PHARMA-000017

PATIENT
  Age: 72 Year
  Sex: Female

DRUGS (1)
  1. LETROZOLE [Suspect]
     Indication: BREAST DUCTAL CARCINOMA
     Route: 048

REACTIONS (2)
  - Macular oedema [None]
  - Blindness unilateral [None]
